FAERS Safety Report 5823659-0 (Version None)
Quarter: 2008Q3

REPORT INFORMATION
  Report Type: 
  Country: None (occurrence: None)
  Receive Date: 20080725
  Receipt Date: 20080717
  Transmission Date: 20090109
  Serious: Yes (Death, Hospitalization, Other)
  Sender: FDA-Public Use
  Company Number: ES-ASTRAZENECA-2008AC01806

PATIENT
  Age: 3 Day
  Sex: Male
  Weight: 4.1 kg

DRUGS (5)
  1. MEROPENEM [Suspect]
     Indication: INFECTION
  2. VALPROIC ACID [Interacting]
     Indication: MYOCLONIC EPILEPSY
     Route: 048
  3. MIDAZOLAM HCL [Concomitant]
     Indication: MYOCLONIC EPILEPSY
  4. AMIKACIN [Concomitant]
     Indication: INFECTION
  5. CEFTAZIDIME [Concomitant]
     Indication: INFECTION

REACTIONS (2)
  - DRUG INTERACTION [None]
  - DRUG LEVEL DECREASED [None]
